FAERS Safety Report 8089557-X (Version None)
Quarter: 2012Q1

REPORT INFORMATION
  Report Type: 
  Country: None (occurrence: None)
  Receive Date: 20120128
  Receipt Date: 20110619
  Transmission Date: 20120608
  Serious: No
  Sender: FDA-Public Use
  Company Number: US-ABBOTT-11P-163-0733595-00

PATIENT
  Age: 58 Year
  Sex: Male

DRUGS (12)
  1. LOVASTAN [Concomitant]
     Indication: BLOOD CHOLESTEROL
  2. ASPIRIN [Concomitant]
     Indication: HYPERTENSION
  3. R-TANNA B25 [Concomitant]
     Indication: SINUSITIS
  4. HUMIRA [Suspect]
     Indication: RHEUMATOID ARTHRITIS
     Dates: start: 20101001, end: 20110501
  5. LISINOPRIL [Concomitant]
     Indication: HYPERTENSION
  6. HUMIRA [Suspect]
     Dates: start: 20110601
  7. FOLIC ACID [Concomitant]
     Indication: VITAMIN SUPPLEMENTATION
  8. TOPROL-XL [Concomitant]
     Indication: HYPERTENSION
  9. METHOTREXATE [Concomitant]
     Indication: RHEUMATOID ARTHRITIS
     Dosage: PILLS, WEEKLY
  10. MULTI-VITAMIN [Concomitant]
     Indication: VITAMIN SUPPLEMENTATION
  11. NIASPAN [Concomitant]
     Indication: HYPERTENSION
  12. VICODIN [Concomitant]
     Indication: PAIN
     Dosage: 5/500MG, PRN

REACTIONS (4)
  - RASH MACULAR [None]
  - ARTHROPOD BITE [None]
  - DRY SKIN [None]
  - RHEUMATOID ARTHRITIS [None]
